FAERS Safety Report 14003419 (Version 2)
Quarter: 2017Q4

REPORT INFORMATION
  Report Type: Not Available
  Country: US (occurrence: US)
  Receive Date: 20170922
  Receipt Date: 20171009
  Transmission Date: 20180321
  Serious: Yes (Other)
  Sender: FDA-Public Use
  Company Number: US-NEUROCRINE BIOSCIENCES INC.-2017NBI00896

PATIENT
  Age: 41 Year
  Sex: Female

DRUGS (24)
  1. SYMLIN [Concomitant]
     Active Substance: PRAMLINTIDE ACETATE
  2. SPIRONOLACTONE. [Concomitant]
     Active Substance: SPIRONOLACTONE
  3. PANTOPRAZOLE [Concomitant]
     Active Substance: PANTOPRAZOLE
  4. ACIDOPHILUS [Concomitant]
     Active Substance: LACTOBACILLUS ACIDOPHILUS
  5. INGREZZA [Suspect]
     Active Substance: VALBENAZINE
     Indication: TARDIVE DYSKINESIA
     Route: 048
     Dates: start: 20170829, end: 20170904
  6. CLONAZEPAM. [Concomitant]
     Active Substance: CLONAZEPAM
  7. VITAMIN A [Concomitant]
     Active Substance: VITAMIN A
  8. EFFEXOR XR [Concomitant]
     Active Substance: VENLAFAXINE HYDROCHLORIDE
  9. BIOTIN [Concomitant]
     Active Substance: BIOTIN
  10. VITAMIN D [Concomitant]
     Active Substance: CHOLECALCIFEROL
     Dosage: EVERY OTHER DAY
  11. ATORVASTATIN [Concomitant]
     Active Substance: ATORVASTATIN
  12. INGREZZA [Suspect]
     Active Substance: VALBENAZINE
     Route: 048
     Dates: start: 20170905, end: 20170911
  13. HUMALOG [Concomitant]
     Active Substance: INSULIN LISPRO
  14. METFORMIN [Concomitant]
     Active Substance: METFORMIN HYDROCHLORIDE
  15. SYNTHROID [Concomitant]
     Active Substance: LEVOTHYROXINE SODIUM
  16. ASPIRIN. [Concomitant]
     Active Substance: ASPIRIN
  17. ABILIFY [Concomitant]
     Active Substance: ARIPIPRAZOLE
  18. LIOTHYRONINE [Concomitant]
     Active Substance: LIOTHYRONINE
  19. OMEGA-3 KRILL [Concomitant]
  20. SUMATRIPTAN. [Concomitant]
     Active Substance: SUMATRIPTAN
     Dosage: AS NEEDED
  21. ZALEPLON. [Concomitant]
     Active Substance: ZALEPLON
  22. MULTIVITAMIN B [Concomitant]
  23. VITAMIN E [Concomitant]
     Active Substance: .ALPHA.-TOCOPHEROL
  24. INSULIN PUMP [Concomitant]
     Active Substance: INSULIN NOS

REACTIONS (2)
  - Skin exfoliation [Not Recovered/Not Resolved]
  - Urticaria [Recovering/Resolving]

NARRATIVE: CASE EVENT DATE: 20170908
